FAERS Safety Report 24857121 (Version 3)
Quarter: 2025Q1

REPORT INFORMATION
  Report Type: Spontaneous
  Country: US (occurrence: US)
  Receive Date: 20250117
  Receipt Date: 20250205
  Transmission Date: 20250409
  Serious: Yes (Disabling, Other)
  Sender: TORRENT PHARMA INC.
  Company Number: US-TORRENT-00013959

PATIENT
  Age: 33 Year
  Sex: Female

DRUGS (1)
  1. ORMALVI [Suspect]
     Active Substance: DICHLORPHENAMIDE
     Indication: Familial periodic paralysis
     Dosage: PRESCRIBED DOSE 50MG TABLET BID (100 MG/DAY) TOOK 0.25 TAB (12.5 MG/DAY), DISCARD DATE -12/11/2025
     Route: 048
     Dates: start: 20241214, end: 20241228

REACTIONS (12)
  - Familial periodic paralysis [Not Recovered/Not Resolved]
  - Decreased appetite [Unknown]
  - Wrong technique in product usage process [Unknown]
  - Nausea [Unknown]
  - Paraesthesia [Unknown]
  - Brain fog [Unknown]
  - Fatigue [Unknown]
  - Cognitive disorder [Unknown]
  - Intentional product use issue [Unknown]
  - Condition aggravated [Unknown]
  - Drug ineffective [Unknown]
  - Disease progression [Not Recovered/Not Resolved]

NARRATIVE: CASE EVENT DATE: 20240124
